FAERS Safety Report 9436605 (Version 1)
Quarter: 2013Q3

REPORT INFORMATION
  Report Type: Spontaneous
  Country: IN (occurrence: IN)
  Receive Date: 20130802
  Receipt Date: 20130802
  Transmission Date: 20140515
  Serious: Yes (Other)
  Sender: FDA-Public Use
  Company Number: IN-MERCK-1307IND016848

PATIENT
  Age: 75 Year
  Sex: 0

DRUGS (1)
  1. JANUMET [Suspect]
     Dosage: STRENGTH 500/50MG, 2 TAB(1000/100MG)/DAY
     Route: 048

REACTIONS (1)
  - Bladder cancer [Unknown]
